FAERS Safety Report 7378275-9 (Version None)
Quarter: 2011Q1

REPORT INFORMATION
  Report Type: 
  Country: None (occurrence: None)
  Receive Date: 20110328
  Receipt Date: 20110318
  Transmission Date: 20110831
  Serious: Yes (Other)
  Sender: FDA-Public Use
  Company Number: ES-ASTRAZENECA-2011SE15678

PATIENT
  Age: 33 Year
  Sex: Female

DRUGS (6)
  1. ZYVOX [Concomitant]
     Indication: ABDOMINAL SEPSIS
     Dosage: 2 MG/ML SOLUTION FOR PER FUSION, 10 BAGS OF 300 ML, 0.6 G TWO TIMES A DAY
     Route: 042
     Dates: start: 20101114, end: 20101117
  2. CIPROFLOXACIN HCL [Suspect]
     Indication: ABDOMINAL SEPSIS
     Route: 042
     Dates: start: 20101112, end: 20101121
  3. DAPTOMICINE [Concomitant]
     Indication: ABDOMINAL SEPSIS
     Route: 042
     Dates: start: 20101112, end: 20101117
  4. MERONEM [Suspect]
     Indication: ABDOMINAL SEPSIS
     Route: 042
     Dates: start: 20101106, end: 20101121
  5. PERFALGAN [Concomitant]
     Indication: PAIN
     Dosage: 10 MG/ML SOLUTION FOR PERFUSION, 12 VIALS, 1 G FOUR TIMES A DAY
     Route: 042
     Dates: start: 20101103
  6. ECALTA [Suspect]
     Indication: ABDOMINAL SEPSIS
     Dosage: 100 MG 1 VIAL POL + 1 VIAL DISOL, 100 MG UNKNOWN FREQUENCY
     Route: 042
     Dates: start: 20101112, end: 20101121

REACTIONS (1)
  - HEPATITIS CHOLESTATIC [None]
